FAERS Safety Report 7941308-2 (Version None)
Quarter: 2011Q4

REPORT INFORMATION
  Report Type: 
  Country: None (occurrence: None)
  Receive Date: 20111122
  Receipt Date: 20111114
  Transmission Date: 20120403
  Serious: Yes (Life-Threatening, Hospitalization)
  Sender: FDA-Public Use
  Company Number: 2011SP003864

PATIENT
  Age: 19 Year
  Sex: Male

DRUGS (3)
  1. LATUDA [Suspect]
     Indication: SCHIZOPHRENIA, PARANOID TYPE
     Dosage: 80 MG; ;ORAL
     Route: 048
     Dates: start: 20111104, end: 20111106
  2. HALDOL [Concomitant]
  3. ZYPREXA [Concomitant]

REACTIONS (2)
  - GRAND MAL CONVULSION [None]
  - MEDICATION ERROR [None]
